FAERS Safety Report 6639145-4 (Version None)
Quarter: 2010Q1

REPORT INFORMATION
  Report Type: 
  Country: None (occurrence: None)
  Receive Date: 20100312
  Receipt Date: 20100225
  Transmission Date: 20100710
  Serious: Yes (Death, Hospitalization)
  Sender: FDA-Public Use
  Company Number: 008079

PATIENT
  Age: 96 Year
  Sex: Male

DRUGS (1)
  1. PLETAL [Suspect]
     Dosage: 100 MG, BID, ORAL
     Route: 048
     Dates: start: 20091106, end: 20091115

REACTIONS (5)
  - CARDIAC FAILURE [None]
  - DRUG DISPENSING ERROR [None]
  - HEART RATE INCREASED [None]
  - PNEUMONIA [None]
  - RESPIRATORY RATE INCREASED [None]
